FAERS Safety Report 13959140 (Version 1)
Quarter: 2017Q3

REPORT INFORMATION
  Report Type: Spontaneous
  Country: US (occurrence: US)
  Receive Date: 20170912
  Receipt Date: 20170912
  Transmission Date: 20171128
  Serious: No
  Sender: FDA-Public Use
  Company Number: US-JNJFOC-20170901896

PATIENT
  Age: 61 Year
  Sex: Female
  Weight: 103.42 kg

DRUGS (2)
  1. ZYRTEC ALLERGY [Suspect]
     Active Substance: CETIRIZINE HYDROCHLORIDE
     Indication: SINUS DISORDER
     Route: 048
  2. ZYRTEC ALLERGY [Suspect]
     Active Substance: CETIRIZINE HYDROCHLORIDE
     Indication: SEASONAL ALLERGY
     Route: 048

REACTIONS (2)
  - Product use in unapproved indication [Not Recovered/Not Resolved]
  - Pruritus [Not Recovered/Not Resolved]
